FAERS Safety Report 24424448 (Version 1)
Quarter: 2024Q4

REPORT INFORMATION
  Report Type: Spontaneous
  Country: US (occurrence: US)
  Receive Date: 20241010
  Receipt Date: 20241010
  Transmission Date: 20250114
  Serious: Yes (Congenital Anomaly, Other)
  Sender: AMGEN
  Company Number: US-AMGEN-USASP2024003459

PATIENT
  Age: 0 Year
  Sex: Male

DRUGS (2)
  1. ENBREL [Suspect]
     Active Substance: ETANERCEPT
     Indication: Exposure via breast milk
     Dosage: UNK
     Route: 063
  2. HYDROXYCHLOROQUINE [Suspect]
     Active Substance: HYDROXYCHLOROQUINE
     Indication: Exposure via breast milk
     Dosage: UNK
     Route: 063

REACTIONS (2)
  - Congenital hypothyroidism [Not Recovered/Not Resolved]
  - Exposure via breast milk [Unknown]

NARRATIVE: CASE EVENT DATE: 20230727
